FAERS Safety Report 16535354 (Version 1)
Quarter: 2019Q3

REPORT INFORMATION
  Report Type: Spontaneous
  Country: US (occurrence: US)
  Receive Date: 20190705
  Receipt Date: 20190705
  Transmission Date: 20191004
  Serious: No
  Sender: FDA-Public Use
  Company Number: US-ASTRAZENECA-2019SE87759

PATIENT
  Age: 798 Month
  Sex: Male
  Weight: 55.3 kg

DRUGS (1)
  1. TAGRISSO [Suspect]
     Active Substance: OSIMERTINIB
     Indication: NON-SMALL CELL LUNG CANCER STAGE IV
     Route: 048
     Dates: start: 201810

REACTIONS (5)
  - Malaise [Unknown]
  - Nail discomfort [Not Recovered/Not Resolved]
  - Weight decreased [Unknown]
  - Nail disorder [Unknown]
  - Hair growth rate abnormal [Not Recovered/Not Resolved]

NARRATIVE: CASE EVENT DATE: 201810
